FAERS Safety Report 13493978 (Version 1)
Quarter: 2017Q2

REPORT INFORMATION
  Report Type: Spontaneous
  Country: GB (occurrence: GB)
  Receive Date: 20170427
  Receipt Date: 20170427
  Transmission Date: 20170830
  Serious: Yes (Disabling, Other)
  Sender: FDA-Public Use
  Company Number: PHFR2017GB002812

PATIENT
  Age: 60 Year
  Sex: Female
  Weight: 57.15 kg

DRUGS (3)
  1. PROPRANOLOL HYDROCHLORIDE. [Suspect]
     Active Substance: PROPRANOLOL HYDROCHLORIDE
     Dosage: 40 UNK, UNK
     Route: 048
  2. PROPRANOLOL HYDROCHLORIDE. [Suspect]
     Active Substance: PROPRANOLOL HYDROCHLORIDE
     Dosage: 80 UNK, UNK
     Route: 048
     Dates: end: 201508
  3. PROPRANOLOL HYDROCHLORIDE. [Suspect]
     Active Substance: PROPRANOLOL HYDROCHLORIDE
     Indication: PANIC DISORDER
     Dosage: 10 MG, UNK 10MG TO 40MG TABLETS TO SUSTAINED RELEASE CAPSULES 80MG.
     Route: 048
     Dates: start: 2009

REACTIONS (1)
  - Paranoia [Recovered/Resolved with Sequelae]

NARRATIVE: CASE EVENT DATE: 2009
